FAERS Safety Report 24246240 (Version 1)
Quarter: 2024Q3

REPORT INFORMATION
  Report Type: Report from Study
  Country: US (occurrence: US)
  Receive Date: 20240825
  Receipt Date: 20240825
  Transmission Date: 20241017
  Serious: Yes (Other)
  Sender: ROCHE
  Company Number: US-ROCHE-10000057788

PATIENT
  Age: 45 Year
  Sex: Male

DRUGS (2)
  1. OCREVUS [Suspect]
     Active Substance: OCRELIZUMAB
     Indication: Secondary progressive multiple sclerosis
     Route: 042
     Dates: start: 20191114
  2. OCREVUS [Suspect]
     Active Substance: OCRELIZUMAB
     Indication: Relapsing multiple sclerosis

REACTIONS (19)
  - Vomiting [Not Recovered/Not Resolved]
  - Fracture treatment [Unknown]
  - Walking aid user [Unknown]
  - Essential hypertension [Unknown]
  - Ischaemic stroke [Unknown]
  - Embolic stroke [Unknown]
  - Cerebrovascular accident [Unknown]
  - Type 2 diabetes mellitus [Unknown]
  - Demyelination [Unknown]
  - Hemiparesis [Unknown]
  - Femur fracture [Unknown]
  - Femoral neck fracture [Unknown]
  - Hyperlipidaemia [Unknown]
  - Vitamin D deficiency [Unknown]
  - Asthenia [Unknown]
  - Leukocytosis [Unknown]
  - Muscular weakness [Unknown]
  - Fall [Unknown]
  - Movement disorder [Unknown]

NARRATIVE: CASE EVENT DATE: 20240809
